FAERS Safety Report 4817900-0 (Version None)
Quarter: 2005Q3

REPORT INFORMATION
  Report Type: 
  Country: None (occurrence: None)
  Receive Date: 20050929
  Receipt Date: 20050616
  Transmission Date: 20060218
  Serious: No
  Sender: FDA-Public Use
  Company Number: 05P-163-0303419-00

PATIENT
  Age: 83 Year
  Sex: Female
  Weight: 54.4316 kg

DRUGS (4)
  1. HUMIRA [Suspect]
     Indication: RHEUMATOID ARTHRITIS
     Dosage: 40 MG, 1 IN 2 WK, SUBCUTANEOUS
     Route: 058
     Dates: start: 20040501, end: 20050601
  2. METHOTREXATE [Concomitant]
  3. ACETAMINOPHEN [Concomitant]
  4. UNKNOWN BLOOD PRESSURE DRUG [Concomitant]

REACTIONS (1)
  - DRUG INEFFECTIVE [None]
